FAERS Safety Report 5652264-4 (Version None)
Quarter: 2008Q1

REPORT INFORMATION
  Report Type: 
  Country: None (occurrence: None)
  Receive Date: 20080305
  Receipt Date: 20080207
  Transmission Date: 20080703
  Serious: No
  Sender: FDA-Public Use
  Company Number: US-BOEHRINGER INGELHEIM GMBH, GERMANY-2008-BP-00902BP

PATIENT
  Sex: Female

DRUGS (20)
  1. SPIRIVA [Suspect]
     Indication: CHRONIC OBSTRUCTIVE PULMONARY DISEASE
     Route: 055
     Dates: start: 20040801, end: 20080107
  2. SPIRIVA [Suspect]
     Route: 055
     Dates: start: 20080117
  3. FORADIL [Concomitant]
     Route: 055
  4. NEBULIZER [Concomitant]
     Route: 048
  5. NAVANE [Concomitant]
  6. RESTORIL [Concomitant]
  7. ASPIRIN [Concomitant]
  8. MUCINEX [Concomitant]
  9. DUONEB [Concomitant]
  10. NASAL SPRAY (SUB FOR FLONASE) [Concomitant]
  11. BONIVA [Concomitant]
  12. CALCIUM [Concomitant]
  13. CENTRUM SILVER VITAMIN [Concomitant]
  14. PRIMIDONE [Concomitant]
  15. SUDAFED NASAL DECONGESTANT [Concomitant]
  16. METAMUCIL [Concomitant]
  17. LUMIGAN EYE DROPS [Concomitant]
  18. SYSTANE EYE DROPS [Concomitant]
  19. PNEUMONIA SHOT [Concomitant]
  20. FLU SHOT [Concomitant]

REACTIONS (3)
  - CONSTIPATION [None]
  - DRY MOUTH [None]
  - GLAUCOMA [None]
